FAERS Safety Report 7739362-6 (Version None)
Quarter: 2011Q3

REPORT INFORMATION
  Report Type: 
  Country: None (occurrence: None)
  Receive Date: 20110909
  Receipt Date: 20110901
  Transmission Date: 20111222
  Serious: Yes (Death)
  Sender: FDA-Public Use
  Company Number: US-MYLANLABS-2009S1017567

PATIENT
  Age: 48 Year
  Sex: Female
  Weight: 112.04 kg

DRUGS (37)
  1. METHOTREXATE [Concomitant]
  2. TIZANIDINE HCL [Concomitant]
  3. TEMAZEPAM [Suspect]
  4. ZOCOR [Concomitant]
  5. SINGULAIR [Concomitant]
  6. ZESTRIL [Concomitant]
  7. AMARYL [Concomitant]
  8. OXYCODONE/APAP /01601701/ [Concomitant]
  9. VITAMIN D [Concomitant]
  10. BONIVA [Concomitant]
  11. ENABLEX [Concomitant]
  12. ORENCIA [Concomitant]
  13. METFORMIN [Concomitant]
  14. VITAMIN TAB [Concomitant]
  15. VIOKASE /00014701/ [Concomitant]
  16. ACYCLOVIR [Concomitant]
  17. CARISOPRODOL [Concomitant]
  18. FIORICET [Concomitant]
  19. CYMBALTA [Concomitant]
  20. ESTRACE [Concomitant]
  21. PROMETHAZINE [Concomitant]
  22. CLONOPIN [Concomitant]
  23. PROTONIX [Concomitant]
  24. PREDNISONE [Concomitant]
  25. HYDROXYZINE [Concomitant]
  26. OMEPRAZOLE [Concomitant]
  27. DARVOCET-N 50 [Concomitant]
  28. FENTANYL-100 [Suspect]
     Indication: PAIN
     Route: 062
     Dates: end: 20081120
  29. ZOLPIDEM [Concomitant]
  30. OPANA [Concomitant]
  31. TRAZODONE HCL [Concomitant]
  32. RESTASIS [Concomitant]
     Route: 047
  33. NEURONTIN [Concomitant]
  34. FOLIC ACID [Concomitant]
  35. AMOXICILLIN [Concomitant]
  36. LORTAB [Concomitant]
  37. CHLORZOXAZONE [Concomitant]

REACTIONS (3)
  - TOXICITY TO VARIOUS AGENTS [None]
  - DRUG ABUSE [None]
  - ACCIDENTAL OVERDOSE [None]
